FAERS Safety Report 4812204-4 (Version None)
Quarter: 2005Q4

REPORT INFORMATION
  Report Type: 
  Country: None (occurrence: None)
  Receive Date: 20051028
  Receipt Date: 20040915
  Transmission Date: 20060501
  Serious: No
  Sender: FDA-Public Use
  Company Number: US-GLAXOSMITHKLINE-A0525779A

PATIENT
  Age: 69 Year
  Sex: Female

DRUGS (6)
  1. ADVAIR DISKUS 100/50 [Suspect]
     Indication: CHRONIC OBSTRUCTIVE PULMONARY DISEASE
     Dosage: 1PUFF TWICE PER DAY
     Route: 055
     Dates: start: 20040908, end: 20040911
  2. DYAZIDE [Suspect]
     Indication: DRUG USE FOR UNKNOWN INDICATION
     Dosage: 1CAP PER DAY
     Route: 048
  3. SYNTHROID [Concomitant]
  4. LIPITOR [Concomitant]
  5. LUMIGAN EYE DROPS [Concomitant]
  6. COMBIVENT [Concomitant]

REACTIONS (1)
  - DYSPHONIA [None]
